FAERS Safety Report 9548900 (Version 2)
Quarter: 2013Q3

REPORT INFORMATION
  Report Type: Spontaneous
  Country: AE (occurrence: AE)
  Receive Date: 20130924
  Receipt Date: 20130926
  Transmission Date: 20140515
  Serious: Yes (Other)
  Sender: FDA-Public Use
  Company Number: AE-ROCHE-1278803

PATIENT
  Age: 37 Year
  Sex: Female
  Weight: 66.4 kg

DRUGS (1)
  1. XOLAIR [Suspect]
     Indication: ASTHMA
     Route: 058
     Dates: start: 20130725, end: 20130820

REACTIONS (1)
  - Hypersensitivity [Recovered/Resolved]
